FAERS Safety Report 11374852 (Version 6)
Quarter: 2016Q4

REPORT INFORMATION
  Report Type: Report from Study
  Country: FR (occurrence: FR)
  Receive Date: 20150813
  Receipt Date: 20161021
  Transmission Date: 20170206
  Serious: Yes (Life-Threatening, Hospitalization)
  Sender: FDA-Public Use
  Company Number: FR-ROCHE-1583941

PATIENT
  Age: 30 Year
  Sex: Female
  Weight: 86 kg

DRUGS (16)
  1. MORPHINE SULPHATE [Concomitant]
     Active Substance: MORPHINE SULFATE
     Route: 065
     Dates: start: 20150521, end: 20150604
  2. MORPHINE SULPHATE [Concomitant]
     Active Substance: MORPHINE SULFATE
     Route: 065
     Dates: start: 20150521, end: 20150604
  3. VEMURAFENIB [Suspect]
     Active Substance: VEMURAFENIB
     Dosage: LAST DOSE PRIOR TO SAE : 21/MAY/2015
     Route: 048
     Dates: start: 20150602
  4. VEMURAFENIB [Suspect]
     Active Substance: VEMURAFENIB
     Indication: NEOPLASM
     Dosage: LAST DOSE PRIOR TO SAE : 21/MAY/2015
     Route: 048
     Dates: start: 20150521, end: 20150522
  5. CLONAZEPAM. [Concomitant]
     Active Substance: CLONAZEPAM
     Route: 065
     Dates: start: 201410, end: 20150603
  6. PREGABALINE [Concomitant]
     Active Substance: PREGABALIN
     Route: 065
     Dates: start: 201410, end: 201505
  7. ZOPICLONE [Concomitant]
     Active Substance: ZOPICLONE
     Route: 065
     Dates: start: 20150423
  8. TRAMADOL. [Concomitant]
     Active Substance: TRAMADOL
     Route: 065
     Dates: start: 20150521
  9. NOMEGESTROL ACETATE [Concomitant]
     Active Substance: NOMEGESTROL ACETATE
     Route: 065
     Dates: start: 201205
  10. CLONAZEPAM. [Concomitant]
     Active Substance: CLONAZEPAM
     Dosage: TOTAL DAILY DOSE: 10 DROPS
     Route: 065
     Dates: start: 201504
  11. PREGABALINE [Concomitant]
     Active Substance: PREGABALIN
     Route: 065
     Dates: start: 20150423
  12. VEMURAFENIB [Suspect]
     Active Substance: VEMURAFENIB
     Route: 048
     Dates: start: 20150830, end: 20150831
  13. PARACETAMOL [Concomitant]
     Active Substance: ACETAMINOPHEN
     Route: 065
     Dates: start: 201504
  14. PARACETAMOL [Concomitant]
     Active Substance: ACETAMINOPHEN
     Route: 065
     Dates: start: 2014
  15. LIDOCAIN [Concomitant]
     Active Substance: LIDOCAINE
     Route: 065
     Dates: start: 20150521
  16. TRAMADOL. [Concomitant]
     Active Substance: TRAMADOL
     Route: 065
     Dates: start: 20150521

REACTIONS (1)
  - Brain oedema [Recovered/Resolved]

NARRATIVE: CASE EVENT DATE: 20150522
